FAERS Safety Report 9868454 (Version 2)
Quarter: 2014Q1

REPORT INFORMATION
  Report Type: Spontaneous
  Country: DE (occurrence: DE)
  Receive Date: 20140204
  Receipt Date: 20140221
  Transmission Date: 20141002
  Serious: Yes (Other)
  Sender: FDA-Public Use
  Company Number: DE-B.I. PHARMACEUTICALS,INC./RIDGEFIELD-2014-BI-04395DE

PATIENT
  Age: 64 Year
  Sex: Male
  Weight: 136 kg

DRUGS (10)
  1. PRADAXA [Suspect]
     Indication: ATRIAL FIBRILLATION
     Dosage: 300 MG
     Route: 048
     Dates: start: 20120305, end: 20140123
  2. ALLOPURINOL SANDOZ [Concomitant]
     Dosage: 300 MG
  3. FUROSEMID 125 1A PHARMA [Concomitant]
     Dosage: 1 ANZ
  4. MANYPER [Concomitant]
     Dosage: 20 MG
  5. BELOC ZOK [Concomitant]
     Dosage: 190 MG
  6. GLUCOPHAGE [Concomitant]
     Dosage: 1000 MG
  7. PERINDOPRILHEXAL + IND4\1,25 [Concomitant]
     Dosage: 1 ANZ
  8. VALORON N RETARD 200\16MG [Concomitant]
     Dosage: DOSE PER APPLICATION: 200/16 MG
  9. VOLTAREN DISPERS [Concomitant]
  10. RESTEX [Concomitant]
     Dosage: 1 ANZ

REACTIONS (1)
  - Arterial thrombosis [Unknown]
